FAERS Safety Report 22883651 (Version 3)
Quarter: 2024Q1

REPORT INFORMATION
  Report Type: Spontaneous
  Country: JP (occurrence: None)
  Receive Date: 20230830
  Receipt Date: 20240326
  Transmission Date: 20240409
  Serious: Yes (Life-Threatening, Hospitalization, Other)
  Sender: FDA-Public Use
  Company Number: 2023A195519

PATIENT
  Age: 78 Year
  Sex: Male
  Weight: 52 kg

DRUGS (4)
  1. IMFINZI [Suspect]
     Active Substance: DURVALUMAB
     Indication: Hepatocellular carcinoma
     Route: 041
     Dates: start: 20230808, end: 20230808
  2. IMJUDO [Suspect]
     Active Substance: TREMELIMUMAB\TREMELIMUMAB-ACTL
     Indication: Hepatocellular carcinoma
     Route: 041
     Dates: start: 20230808, end: 20230808
  3. ENTRESTO [Concomitant]
     Active Substance: SACUBITRIL\VALSARTAN
     Dosage: IN THE MORNING AND EVENING
     Route: 048
  4. BISOPROLOL FUMARATE [Concomitant]
     Active Substance: BISOPROLOL FUMARATE
     Dosage: IN THE MORNING AND EVENING
     Route: 048

REACTIONS (7)
  - Diarrhoea [Recovered/Resolved]
  - Altered state of consciousness [Recovered/Resolved]
  - Dehydration [Unknown]
  - Hypotension [Recovering/Resolving]
  - Immune-mediated enterocolitis [Recovering/Resolving]
  - Ascites [Unknown]
  - Cardiac output decreased [Unknown]

NARRATIVE: CASE EVENT DATE: 20230810
